FAERS Safety Report 9922255 (Version 3)
Quarter: 2014Q2

REPORT INFORMATION
  Report Type: Spontaneous
  Country: US (occurrence: US)
  Receive Date: 20140225
  Receipt Date: 20140602
  Transmission Date: 20141212
  Serious: Yes (Other)
  Sender: FDA-Public Use
  Company Number: US-GILEAD-2014-0095111

PATIENT
  Sex: Male

DRUGS (3)
  1. LETAIRIS [Suspect]
     Indication: PULMONARY ARTERIAL HYPERTENSION
     Dosage: 10 MG, QD
     Route: 048
     Dates: start: 20110330
  2. REMODULIN [Concomitant]
  3. ADCIRCA [Concomitant]

REACTIONS (3)
  - Renal failure [Unknown]
  - Right ventricular failure [Unknown]
  - Renal disorder [Unknown]
